FAERS Safety Report 12955359 (Version 1)
Quarter: 2016Q4

REPORT INFORMATION
  Report Type: Spontaneous
  Country: US (occurrence: US)
  Receive Date: 20161118
  Receipt Date: 20161118
  Transmission Date: 20170207
  Serious: No
  Sender: FDA-Public Use
  Company Number: US-PERRIGO-16US015045

PATIENT
  Age: 3 Year
  Sex: Male
  Weight: 22.22 kg

DRUGS (3)
  1. POLYETHYLENE GLYCOL 3350. [Suspect]
     Active Substance: POLYETHYLENE GLYCOL 3350
     Dosage: APPROXIMATELY 8 G TO 34 G, QD
     Route: 048
     Dates: start: 201603, end: 20160405
  2. POLYETHYLENE GLYCOL 3350. [Suspect]
     Active Substance: POLYETHYLENE GLYCOL 3350
     Indication: CONSTIPATION
     Dosage: APPROXIMATELY 8 G TO 34 G, QD
     Route: 048
     Dates: start: 20151227, end: 201603
  3. EXLAX                              /00221401/ [Concomitant]
     Indication: CONSTIPATION
     Dosage: UNK, PRN
     Route: 065

REACTIONS (11)
  - Aggression [Recovering/Resolving]
  - Enuresis [Recovering/Resolving]
  - Insomnia [Recovering/Resolving]
  - Anxiety [Recovering/Resolving]
  - Eczema [Recovering/Resolving]
  - Frustration tolerance decreased [Recovered/Resolved]
  - Incorrect drug administration duration [Recovered/Resolved]
  - Amblyopia [Recovering/Resolving]
  - Anal incontinence [Recovered/Resolved]
  - Drug effect variable [Unknown]
  - Drug administered to patient of inappropriate age [Recovered/Resolved]

NARRATIVE: CASE EVENT DATE: 201512
